FAERS Safety Report 7680727-9 (Version None)
Quarter: 2011Q3

REPORT INFORMATION
  Report Type: 
  Country: None (occurrence: None)
  Receive Date: 20110812
  Receipt Date: 20110805
  Transmission Date: 20111222
  Serious: Yes (Other)
  Sender: FDA-Public Use
  Company Number: GB-BRISTOL-MYERS SQUIBB COMPANY-15955354

PATIENT
  Sex: Male

DRUGS (3)
  1. DOXAZOSIN MESYLATE [Interacting]
  2. LISINOPRIL [Suspect]
  3. ABILIFY [Interacting]

REACTIONS (2)
  - HAEMODIALYSIS [None]
  - DRUG INTERACTION [None]
